FAERS Safety Report 6072356-8 (Version None)
Quarter: 2009Q1

REPORT INFORMATION
  Report Type: 
  Country: None (occurrence: None)
  Receive Date: 20090210
  Receipt Date: 20090203
  Transmission Date: 20090719
  Serious: Yes (Other)
  Sender: FDA-Public Use
  Company Number: PHBS2009KR00713

PATIENT
  Age: 22 Year
  Sex: Male

DRUGS (3)
  1. CYCLOSPORINE [Suspect]
     Indication: STEM CELL TRANSPLANT
     Dosage: 1.5 MG/KG, Q12H
     Route: 042
  2. CYCLOSPORINE [Suspect]
     Route: 048
  3. METHOTREXATE [Concomitant]

REACTIONS (2)
  - CYTOMEGALOVIRUS INFECTION [None]
  - PSEUDOMEMBRANOUS COLITIS [None]
